FAERS Safety Report 7913115-8 (Version None)
Quarter: 2011Q4

REPORT INFORMATION
  Report Type: 
  Country: None (occurrence: None)
  Receive Date: 20111114
  Receipt Date: 20111107
  Transmission Date: 20120403
  Serious: No
  Sender: FDA-Public Use
  Company Number: US-BAYER-2011-108953

PATIENT
  Sex: Male

DRUGS (5)
  1. CRESTOR [Concomitant]
  2. AVELOX [Suspect]
     Dosage: 400 MG, HS
     Route: 048
     Dates: start: 20111106
  3. PRILOSEC [Concomitant]
  4. AVELOX [Suspect]
     Indication: SINUSITIS
     Dosage: UNK
     Route: 048
  5. DIOVAN [Concomitant]

REACTIONS (3)
  - DERMATITIS [None]
  - SKIN DISORDER [None]
  - SKIN FISSURES [None]
